FAERS Safety Report 6985008-4 (Version None)
Quarter: 2010Q3

REPORT INFORMATION
  Report Type: 
  Country: None (occurrence: None)
  Receive Date: 20100915
  Receipt Date: 20100902
  Transmission Date: 20110219
  Serious: Yes (Other)
  Sender: FDA-Public Use
  Company Number: PHHY2010JP29942

PATIENT
  Sex: Male

DRUGS (8)
  1. TASIGNA [Suspect]
     Indication: CHRONIC MYELOID LEUKAEMIA
     Dosage: 800 MG
     Route: 048
     Dates: start: 20091217, end: 20100308
  2. TASIGNA [Suspect]
     Dosage: 800 MG, DAILY
     Route: 048
     Dates: start: 20100324, end: 20100606
  3. CELESTAMINE TAB [Suspect]
     Dosage: 3 DF
     Route: 048
     Dates: start: 20091228, end: 20100308
  4. AMLODIPINE BESYLATE [Concomitant]
     Indication: HYPERTENSION
     Dosage: 05 MG
     Route: 048
  5. LASIX [Concomitant]
     Indication: HYPERTENSION
     Dosage: 40 MG
     Route: 048
     Dates: start: 20090717
  6. TAKEPRON [Concomitant]
     Dosage: 15 MG
     Route: 048
     Dates: start: 20091210
  7. GASTROM [Concomitant]
     Dosage: 15 MG
     Route: 048
     Dates: start: 20091210
  8. TALION [Concomitant]
     Indication: PROPHYLAXIS
     Dosage: 10 G, UNK
     Route: 048
     Dates: start: 20100324

REACTIONS (7)
  - CHRONIC MYELOID LEUKAEMIA TRANSFORMATION [None]
  - DIABETES MELLITUS [None]
  - INFECTION [None]
  - NEUTROPHIL COUNT DECREASED [None]
  - PLATELET COUNT DECREASED [None]
  - PRURITUS GENERALISED [None]
  - WHITE BLOOD CELL COUNT DECREASED [None]
